FAERS Safety Report 9707230 (Version 1)
Quarter: 2013Q4

REPORT INFORMATION
  Report Type: Spontaneous
  Country: SI (occurrence: SI)
  Receive Date: 20131125
  Receipt Date: 20131125
  Transmission Date: 20140711
  Serious: Yes (Hospitalization)
  Sender: FDA-Public Use
  Company Number: SI-MYLANLABS-2013S1025734

PATIENT
  Age: 41 Year
  Sex: Female

DRUGS (15)
  1. LITHIUM [Suspect]
     Indication: SUICIDE ATTEMPT
     Dosage: 30G
     Route: 048
  2. LITHIUM [Suspect]
     Indication: DEPRESSION
     Dosage: 30G
     Route: 048
  3. LITHIUM [Suspect]
     Indication: PSYCHOTIC DISORDER DUE TO A GENERAL MEDICAL CONDITION
     Dosage: 30G
     Route: 048
  4. LITHIUM [Suspect]
     Indication: SUICIDE ATTEMPT
     Dosage: FOR SEVERAL MONTHS
     Route: 048
  5. LITHIUM [Suspect]
     Indication: DEPRESSION
     Dosage: FOR SEVERAL MONTHS
     Route: 048
  6. LITHIUM [Suspect]
     Indication: PSYCHOTIC DISORDER DUE TO A GENERAL MEDICAL CONDITION
     Dosage: FOR SEVERAL MONTHS
     Route: 048
  7. VENLAFAXINE [Suspect]
     Indication: SUICIDE ATTEMPT
     Dosage: 2100MG
     Route: 048
  8. VENLAFAXINE [Suspect]
     Indication: DEPRESSION
     Dosage: 2100MG
     Route: 048
  9. VENLAFAXINE [Suspect]
     Indication: PSYCHOTIC DISORDER DUE TO A GENERAL MEDICAL CONDITION
     Dosage: 2100MG
     Route: 048
  10. VENLAFAXINE [Suspect]
     Indication: SUICIDE ATTEMPT
     Dosage: FOR SEVEAL MONTHS
     Route: 048
  11. VENLAFAXINE [Suspect]
     Indication: DEPRESSION
     Dosage: FOR SEVEAL MONTHS
     Route: 048
  12. VENLAFAXINE [Suspect]
     Indication: PSYCHOTIC DISORDER DUE TO A GENERAL MEDICAL CONDITION
     Dosage: FOR SEVEAL MONTHS
     Route: 048
  13. VENLAFAXINE [Suspect]
     Indication: SUICIDE ATTEMPT
     Dosage: FOR SEVERAL MONTHS
     Route: 048
  14. VENLAFAXINE [Suspect]
     Indication: DEPRESSION
     Dosage: FOR SEVERAL MONTHS
     Route: 048
  15. VENLAFAXINE [Suspect]
     Indication: PSYCHOTIC DISORDER DUE TO A GENERAL MEDICAL CONDITION
     Dosage: FOR SEVERAL MONTHS
     Route: 048

REACTIONS (14)
  - Toxicity to various agents [Recovered/Resolved]
  - Toxicity to various agents [Recovered/Resolved]
  - Poisoning deliberate [Recovered/Resolved]
  - Suicide attempt [Recovered/Resolved]
  - Overdose [Recovered/Resolved]
  - Electrocardiogram QT prolonged [Recovered/Resolved]
  - Confusional state [Recovered/Resolved]
  - Disorientation [Recovered/Resolved]
  - Muscle contractions involuntary [Recovered/Resolved]
  - Restlessness [Recovered/Resolved]
  - Tremor [Recovered/Resolved]
  - Tachypnoea [Recovered/Resolved]
  - Hypothyroidism [Unknown]
  - Vomiting [Unknown]
